FAERS Safety Report 19227863 (Version 1)
Quarter: 2021Q2

REPORT INFORMATION
  Report Type: Spontaneous
  Country: US (occurrence: US)
  Receive Date: 20210506
  Receipt Date: 20210506
  Transmission Date: 20210717
  Serious: No
  Sender: FDA-Public Use
  Company Number: US-ROCHE-2710875

PATIENT
  Sex: Male

DRUGS (2)
  1. ESBRIET [Suspect]
     Active Substance: PIRFENIDONE
     Route: 048
     Dates: start: 20200518
  2. ESBRIET [Suspect]
     Active Substance: PIRFENIDONE
     Indication: IDIOPATHIC PULMONARY FIBROSIS
     Route: 048
     Dates: start: 20200629

REACTIONS (9)
  - Productive cough [Unknown]
  - Pulmonary pain [Unknown]
  - Dyspnoea [Unknown]
  - Nausea [Unknown]
  - Product dose omission issue [Unknown]
  - Decreased appetite [Unknown]
  - Headache [Unknown]
  - Rhinorrhoea [Unknown]
  - Fatigue [Unknown]
